FAERS Safety Report 14314919 (Version 11)
Quarter: 2020Q4

REPORT INFORMATION
  Report Type: Spontaneous
  Country: GR (occurrence: GR)
  Receive Date: 20171221
  Receipt Date: 20201005
  Transmission Date: 20210113
  Serious: Yes (Other)
  Sender: FDA-Public Use
  Company Number: GR-ELI_LILLY_AND_COMPANY-GR201712006788

PATIENT
  Age: 62 Year
  Sex: Female

DRUGS (39)
  1. TYKERB [Suspect]
     Active Substance: LAPATINIB DITOSYLATE
     Indication: BREAST CANCER METASTATIC
     Dosage: 1 DF, DAILY
     Route: 065
  2. TYKERB [Suspect]
     Active Substance: LAPATINIB DITOSYLATE
     Indication: METASTATIC MALIGNANT MELANOMA
  3. VINORELBINE [Suspect]
     Active Substance: VINORELBINE TARTRATE
     Indication: BREAST CANCER METASTATIC
     Dosage: 01 DF, CYCLICAL
     Route: 065
     Dates: start: 2009
  4. TAMOXIFEN CITRATE. [Suspect]
     Active Substance: TAMOXIFEN CITRATE
     Indication: RECURRENT CANCER
     Dosage: 01 DF, CYCLICAL
     Route: 048
     Dates: start: 2009
  5. TAMOXIFEN CITRATE. [Suspect]
     Active Substance: TAMOXIFEN CITRATE
     Indication: BREAST CANCER METASTATIC
  6. EPIRUBICIN [Suspect]
     Active Substance: EPIRUBICIN
     Indication: RECURRENT CANCER
  7. TRASTUZUMAB EMTANSINE [Suspect]
     Active Substance: ADO-TRASTUZUMAB EMTANSINE
     Indication: BREAST CANCER METASTATIC
     Dosage: 01 DF, CYCLICAL
     Route: 065
     Dates: start: 2009
  8. EVEROLIMUS. [Suspect]
     Active Substance: EVEROLIMUS
     Indication: PROPHYLAXIS AGAINST TRANSPLANT REJECTION
  9. DOCETAXEL. [Suspect]
     Active Substance: DOCETAXEL
     Indication: BREAST CANCER METASTATIC
     Dosage: 01 DF, CYCLICAL
     Route: 065
     Dates: start: 2009
  10. DOCETAXEL. [Suspect]
     Active Substance: DOCETAXEL
     Indication: RECURRENT CANCER
  11. GEMCITABINE HYDROCHLORIDE. [Suspect]
     Active Substance: GEMCITABINE HYDROCHLORIDE
     Indication: RECURRENT CANCER
     Dosage: 1 DF, DAILY
     Route: 065
     Dates: start: 2009
  12. CARBOPLATIN. [Suspect]
     Active Substance: CARBOPLATIN
     Indication: BREAST CANCER METASTATIC
     Dosage: 01 DF, CYCLICAL
     Route: 065
     Dates: start: 2009
  13. CAPECITABINE. [Suspect]
     Active Substance: CAPECITABINE
     Indication: RECURRENT CANCER
     Dosage: 1 DF, DAILY
     Route: 065
     Dates: start: 2009
  14. FULVESTRANT. [Suspect]
     Active Substance: FULVESTRANT
     Indication: BREAST CANCER METASTATIC
     Dosage: 01 DF, CYCLICAL
     Route: 030
     Dates: start: 2009
  15. FULVESTRANT. [Suspect]
     Active Substance: FULVESTRANT
     Indication: RECURRENT CANCER
     Dosage: 1 DF, DAILY
     Route: 030
     Dates: start: 2009
  16. EVEROLIMUS. [Suspect]
     Active Substance: EVEROLIMUS
     Indication: RECURRENT CANCER
     Dosage: 1 DF, DAILY
     Route: 065
     Dates: start: 2009
  17. VINORELBINE [Suspect]
     Active Substance: VINORELBINE TARTRATE
     Indication: RECURRENT CANCER
     Dosage: 1 DF, DAILY
     Route: 065
     Dates: start: 2009
  18. TRASTUZUMAB EMTANSINE [Suspect]
     Active Substance: ADO-TRASTUZUMAB EMTANSINE
     Indication: RECURRENT CANCER
     Dosage: 1 DF, DAILY
     Route: 065
     Dates: start: 2009
  19. CAPECITABINE. [Suspect]
     Active Substance: CAPECITABINE
     Indication: BREAST CANCER METASTATIC
     Dosage: 1 DF, CYCLICAL
     Route: 065
     Dates: start: 2009
  20. ERIBULIN [Suspect]
     Active Substance: ERIBULIN
     Indication: BREAST CANCER METASTATIC
     Dosage: 1 DF, CYCLIC COMBINATION WITH TRASTUZUMAB
     Route: 065
     Dates: start: 2009
  21. ERIBULIN [Suspect]
     Active Substance: ERIBULIN
     Indication: RECURRENT CANCER
  22. FLUOROURACIL. [Suspect]
     Active Substance: FLUOROURACIL
     Dosage: 1 DF, DAILY
     Route: 065
     Dates: start: 2006
  23. EVEROLIMUS. [Suspect]
     Active Substance: EVEROLIMUS
     Indication: BREAST CANCER METASTATIC
     Dosage: 01 DF, CYCLICAL
     Route: 065
     Dates: start: 2009
  24. ENDOXAN [CYCLOPHOSPHAMIDE] [Suspect]
     Active Substance: CYCLOPHOSPHAMIDE
     Indication: BREAST CANCER METASTATIC
     Dosage: 01 DF, CYCLICAL
     Route: 065
     Dates: start: 2006
  25. GEMCITABINE HYDROCHLORIDE. [Suspect]
     Active Substance: GEMCITABINE HYDROCHLORIDE
     Indication: BREAST CANCER METASTATIC
     Dosage: 01 DF, CYCLICAL
     Route: 065
     Dates: start: 2009
  26. FULVESTRANT. [Suspect]
     Active Substance: FULVESTRANT
     Indication: METASTATIC MALIGNANT MELANOMA
  27. METHOTREXATE SODIUM. [Suspect]
     Active Substance: METHOTREXATE SODIUM
     Indication: BREAST CANCER METASTATIC
     Dosage: 01 DF, CYCLICAL
     Route: 065
     Dates: start: 2006
  28. METHOTREXATE SODIUM. [Suspect]
     Active Substance: METHOTREXATE SODIUM
     Dosage: 1 DF, DAILY
     Route: 065
     Dates: start: 2006
  29. TYKERB [Suspect]
     Active Substance: LAPATINIB DITOSYLATE
     Indication: RECURRENT CANCER
     Dosage: 01 DF, CYCLICAL
     Route: 065
     Dates: start: 2009
  30. LIPOSOMAL DOXORUBICIN HYDROCHLORIDE [Suspect]
     Active Substance: DOXORUBICIN HYDROCHLORIDE
     Indication: RECURRENT CANCER
     Dosage: 01 DF, CYCLICAL
     Route: 065
     Dates: start: 2009
  31. EXEMESTANE. [Suspect]
     Active Substance: EXEMESTANE
     Indication: RECURRENT CANCER
     Dosage: 1 DF, DAILY
     Route: 065
     Dates: start: 2009
  32. PACLITAXEL. [Suspect]
     Active Substance: PACLITAXEL
     Indication: BREAST CANCER METASTATIC
     Dosage: 01 DF, CYCLICAL
     Route: 065
     Dates: start: 2006
  33. LIPOSOMAL DOXORUBICIN HYDROCHLORIDE [Suspect]
     Active Substance: DOXORUBICIN HYDROCHLORIDE
     Indication: BREAST CANCER METASTATIC
     Dosage: 1 DF, DAILY
     Route: 065
     Dates: start: 2009
  34. EXEMESTANE. [Suspect]
     Active Substance: EXEMESTANE
     Indication: BREAST CANCER METASTATIC
     Dosage: 01 DF, CYCLICAL
     Route: 065
     Dates: start: 2009
  35. EXEMESTANE. [Suspect]
     Active Substance: EXEMESTANE
  36. CARBOPLATIN. [Suspect]
     Active Substance: CARBOPLATIN
     Indication: RECURRENT CANCER
     Dosage: 1 DF, DAILY
     Route: 065
     Dates: start: 2009
  37. FLUOROURACIL. [Suspect]
     Active Substance: FLUOROURACIL
     Indication: BREAST CANCER METASTATIC
     Dosage: 1 DF, CYCLICAL
     Route: 065
     Dates: start: 2006
  38. EVEROLIMUS. [Suspect]
     Active Substance: EVEROLIMUS
     Indication: BREAST CANCER
  39. EPIRUBICIN [Suspect]
     Active Substance: EPIRUBICIN
     Indication: BREAST CANCER METASTATIC
     Dosage: 01 DF, CYCLICAL
     Route: 001
     Dates: start: 2006

REACTIONS (9)
  - Metastases to bone [Unknown]
  - Recurrent cancer [Unknown]
  - Off label use [Unknown]
  - Metastases to skin [Unknown]
  - Metastases to lymph nodes [Unknown]
  - Malignant neoplasm progression [Unknown]
  - Metastases to lung [Unknown]
  - Skin mass [Unknown]
  - Hormone receptor positive breast cancer [Unknown]

NARRATIVE: CASE EVENT DATE: 2009
